FAERS Safety Report 24952488 (Version 3)
Quarter: 2025Q2

REPORT INFORMATION
  Report Type: Report from Study
  Country: US (occurrence: US)
  Receive Date: 20250210
  Receipt Date: 20250501
  Transmission Date: 20250717
  Serious: Yes (Hospitalization, Other)
  Sender: ABBVIE
  Company Number: US-ABBVIE-6122244

PATIENT
  Age: 22 Year
  Sex: Male
  Weight: 152.4 kg

DRUGS (4)
  1. RINVOQ [Suspect]
     Active Substance: UPADACITINIB
     Indication: Colitis ulcerative
     Dosage: 30 MILLIGRAM
     Route: 048
     Dates: start: 20240910
  2. BUSPAR [Concomitant]
     Active Substance: BUSPIRONE HYDROCHLORIDE
     Indication: Product used for unknown indication
  3. PROPRANOLOL [Concomitant]
     Active Substance: PROPRANOLOL HYDROCHLORIDE
     Indication: Product used for unknown indication
  4. PROTONIX [Concomitant]
     Active Substance: PANTOPRAZOLE SODIUM
     Indication: Product used for unknown indication

REACTIONS (6)
  - Postoperative wound infection [Recovered/Resolved]
  - Faecal calprotectin increased [Unknown]
  - Incision site erythema [Unknown]
  - Incision site rash [Unknown]
  - Incision site discharge [Unknown]
  - Hidradenitis [Unknown]

NARRATIVE: CASE EVENT DATE: 20250101
